FAERS Safety Report 4343997-0 (Version None)
Quarter: 2004Q2

REPORT INFORMATION
  Report Type: 
  Country: None (occurrence: None)
  Receive Date: 20040419
  Receipt Date: 20040402
  Transmission Date: 20050107
  Serious: Yes (Other)
  Sender: FDA-Public Use
  Company Number: 6008252

PATIENT
  Age: 41 Year
  Sex: Male

DRUGS (1)
  1. METFORMIN(METFORMIN) [Suspect]
     Indication: DIABETES MELLITUS
     Dosage: 500 MG ORAL
     Route: 048
     Dates: start: 20010615

REACTIONS (2)
  - ALANINE AMINOTRANSFERASE ABNORMAL [None]
  - ASPARTATE AMINOTRANSFERASE ABNORMAL [None]
